FAERS Safety Report 5066462-4 (Version None)
Quarter: 2006Q3

REPORT INFORMATION
  Report Type: 
  Country: None (occurrence: None)
  Receive Date: 20060717
  Receipt Date: 20060616
  Transmission Date: 20061208
  Serious: Yes (Other)
  Sender: FDA-Public Use
  Company Number: SGB1-2005-00535

PATIENT
  Age: 70 Year
  Sex: Female
  Weight: 62 kg

DRUGS (3)
  1. ANAGRELIDE HCL [Suspect]
     Indication: ESSENTIAL THROMBOCYTHAEMIA
     Dosage: 1 MG, 3X/DAY; TID, ORAL
     Route: 048
     Dates: start: 20021111, end: 20051028
  2. ASPIRINE   /00346701/(ACETYLSALICYLIC ACID, ASCORBIC ACID) [Concomitant]
  3. PHYLLOCONTIN(AMINOPHYLLINE) [Concomitant]

REACTIONS (1)
  - RENAL IMPAIRMENT [None]
